FAERS Safety Report 24885081 (Version 3)
Quarter: 2025Q1

REPORT INFORMATION
  Report Type: Spontaneous
  Country: GR (occurrence: GR)
  Receive Date: 20250124
  Receipt Date: 20250327
  Transmission Date: 20250408
  Serious: No
  Sender: PFIZER
  Company Number: GR-PFIZER INC-PV202500008220

PATIENT
  Age: 10 Year
  Sex: Female
  Weight: 27 kg

DRUGS (1)
  1. GENOTROPIN [Suspect]
     Active Substance: SOMATROPIN
     Indication: Growth hormone deficiency
     Dosage: 7 DAYS
     Route: 058
     Dates: start: 20240826

REACTIONS (2)
  - Device information output issue [Unknown]
  - Drug dose omission by device [Unknown]

NARRATIVE: CASE EVENT DATE: 20250118
